FAERS Safety Report 17638933 (Version 2)
Quarter: 2021Q1

REPORT INFORMATION
  Report Type: Spontaneous
  Country: US (occurrence: US)
  Receive Date: 20200407
  Receipt Date: 20210104
  Transmission Date: 20210419
  Serious: Yes (Other)
  Sender: FDA-Public Use
  Company Number: US-PFIZER INC-2020134662

PATIENT
  Age: 73 Year
  Sex: Male

DRUGS (2)
  1. VYNDAQEL [Suspect]
     Active Substance: TAFAMIDIS MEGLUMINE
     Indication: AMYLOIDOSIS
     Dosage: 80 MG
  2. VYNDAQEL [Suspect]
     Active Substance: TAFAMIDIS MEGLUMINE
     Indication: CARDIAC AMYLOIDOSIS

REACTIONS (16)
  - Spinal osteoarthritis [Unknown]
  - Angina unstable [Unknown]
  - Oedema peripheral [Unknown]
  - Depression [Unknown]
  - Polyneuropathy idiopathic progressive [Unknown]
  - Gait disturbance [Unknown]
  - Hypoaesthesia [Unknown]
  - Restless legs syndrome [Unknown]
  - Carpal tunnel syndrome [Unknown]
  - Orthostatic hypotension [Unknown]
  - Joint dislocation [Unknown]
  - Paraesthesia [Unknown]
  - Osteoarthritis [Unknown]
  - Abdominal pain [Unknown]
  - Benign prostatic hyperplasia [Unknown]
  - Ataxia [Unknown]
